FAERS Safety Report 21122455 (Version 1)
Quarter: 2022Q3

REPORT INFORMATION
  Report Type: Spontaneous
  Country: US (occurrence: US)
  Receive Date: 20220723
  Receipt Date: 20220723
  Transmission Date: 20221027
  Serious: No
  Sender: FDA-Public Use
  Company Number: US-BRISTOL-MYERS SQUIBB COMPANY-2022-077870

PATIENT
  Age: 55 Year
  Sex: Female

DRUGS (1)
  1. SPRYCEL [Suspect]
     Active Substance: DASATINIB
     Indication: Chronic myeloid leukaemia
     Dosage: ONGOING
     Route: 048
     Dates: start: 20220624

REACTIONS (11)
  - Headache [Unknown]
  - Rash [Unknown]
  - Contusion [Unknown]
  - Ocular hyperaemia [Unknown]
  - Tinnitus [Unknown]
  - Abdominal discomfort [Unknown]
  - Decreased appetite [Unknown]
  - Fatigue [Unknown]
  - Cognitive disorder [Unknown]
  - Dyspnoea [Not Recovered/Not Resolved]
  - Platelet count increased [Unknown]
